FAERS Safety Report 8805981 (Version 1)
Quarter: 2012Q4

REPORT INFORMATION
  Report Type: Spontaneous
  Country: US (occurrence: None)
  Receive Date: 20120919
  Receipt Date: 20120919
  Transmission Date: 20130627
  Serious: Yes (Hospitalization)
  Sender: FDA-Public Use
  Company Number: None

PATIENT
  Age: 26 Year
  Sex: Female
  Weight: 66.23 kg

DRUGS (3)
  1. OMNIPAQUE [Suspect]
     Indication: COMPUTERISED TOMOGRAM KIDNEY
     Dosage: on IV
     Route: 042
     Dates: start: 20120501, end: 20120501
  2. OMNIPAQUE [Suspect]
     Indication: COMPUTERISED TOMOGRAM ABDOMEN
     Dosage: on IV
     Route: 042
     Dates: start: 20120501, end: 20120501
  3. OMNIPAQUE [Suspect]
     Indication: COMPUTERISED TOMOGRAM
     Dosage: on IV
     Route: 042
     Dates: start: 20120501, end: 20120501

REACTIONS (3)
  - Rash [None]
  - Rash [None]
  - Contrast media reaction [None]
